FAERS Safety Report 6357982-0 (Version None)
Quarter: 2009Q3

REPORT INFORMATION
  Report Type: 
  Country: None (occurrence: None)
  Receive Date: 20090916
  Receipt Date: 20090916
  Transmission Date: 20100115
  Serious: Yes (Death, Hospitalization, Other)
  Sender: FDA-Public Use
  Company Number: JP-B.I. PHARMACEUTICALS,INC./RIDGEFIELD-2007-BP-23530NB

PATIENT
  Sex: Female
  Weight: 31 kg

DRUGS (9)
  1. MICARDIS [Suspect]
     Indication: HYPERTENSION
     Dosage: 20 MG
     Route: 048
     Dates: start: 20060724
  2. LASIX [Suspect]
     Dosage: 20 MG
     Route: 048
     Dates: start: 20070123, end: 20080411
  3. TANATRIL [Suspect]
     Indication: HYPERTENSION
     Dosage: 1.25 MG
     Route: 048
     Dates: start: 20080212, end: 20080301
  4. NITOROL R [Concomitant]
     Indication: ANGINA PECTORIS
     Dosage: 40 MG
     Route: 048
     Dates: start: 20051208, end: 20081002
  5. NITRODERM [Concomitant]
     Indication: ANGINA PECTORIS
     Dosage: 1 DF
     Route: 062
     Dates: start: 20080301, end: 20081002
  6. ASPIRIN [Concomitant]
     Indication: CARDIAC VALVE DISEASE
     Dosage: 100 MG
     Route: 048
     Dates: start: 20060317, end: 20081002
  7. CALBLOCK [Concomitant]
     Indication: HYPERTENSION
     Dosage: 8 MG
     Route: 048
     Dates: start: 20080523, end: 20081002
  8. NORVASC [Concomitant]
     Indication: HYPERTENSION
     Dosage: 5 MG
     Route: 048
     Dates: start: 20051208, end: 20070104
  9. KREMEZIN [Concomitant]
     Indication: RENAL FAILURE CHRONIC
     Dosage: 4 MG
     Route: 048
     Dates: start: 20080301, end: 20081002

REACTIONS (10)
  - ATRIAL FLUTTER [None]
  - BLOOD CREATININE INCREASED [None]
  - BLOOD UREA INCREASED [None]
  - CARDIAC FAILURE [None]
  - HYPERKALAEMIA [None]
  - HYPERURICAEMIA [None]
  - PNEUMONIA ASPIRATION [None]
  - PYELONEPHRITIS [None]
  - RENAL FAILURE CHRONIC [None]
  - URINARY TRACT INFECTION [None]
